FAERS Safety Report 4474699-8 (Version None)
Quarter: 2004Q3

REPORT INFORMATION
  Report Type: 
  Country: None (occurrence: None)
  Receive Date: 20040923
  Receipt Date: 20040630
  Transmission Date: 20050211
  Serious: No
  Sender: FDA-Public Use
  Company Number: USA040771619

PATIENT
  Age: 77 Year
  Sex: Female

DRUGS (6)
  1. FORTEO [Suspect]
     Indication: OSTEOPOROSIS
     Dates: start: 20040301
  2. PLETAL [Concomitant]
  3. ASPIRIN [Concomitant]
  4. DOXEPIN HCL [Concomitant]
  5. XANAX [Concomitant]
  6. VITAMIN B12 FOR INJECTION (CYANCOBALAMIN) [Concomitant]

REACTIONS (2)
  - CONTUSION [None]
  - INJECTION SITE HAEMORRHAGE [None]
